FAERS Safety Report 4303664-6 (Version None)
Quarter: 2004Q1

REPORT INFORMATION
  Report Type: 
  Country: None (occurrence: None)
  Receive Date: 20040223
  Receipt Date: 20040217
  Transmission Date: 20041129
  Serious: Yes (Other)
  Sender: FDA-Public Use
  Company Number: 2004198597US

PATIENT
  Age: 63 Year
  Sex: Female
  Weight: 65 kg

DRUGS (3)
  1. CAMPTOSAR [Suspect]
     Indication: NON-SMALL CELL LUNG CANCER
     Dosage: 60 MG/M2, CYCLIC, WEEKLY, IV
     Route: 042
     Dates: start: 20021203, end: 20021210
  2. COMPARATOR - DOCETAXEL (DOCETAXEL) INJECTION [Suspect]
     Indication: NON-SMALL CELL LUNG CANCER STAGE IIIB
     Dosage: 35 MG/M2, CYCLIC, WEEKLY, IV
     Route: 042
     Dates: start: 20021203, end: 20021210
  3. DEXAMETHASONE [Concomitant]

REACTIONS (6)
  - BLOOD AMYLASE INCREASED [None]
  - CARCINOMA [None]
  - LABORATORY TEST ABNORMAL [None]
  - NAUSEA [None]
  - PANCREATIC ENZYMES INCREASED [None]
  - VOMITING [None]
